APPROVED DRUG PRODUCT: ALBUTEROL SULFATE
Active Ingredient: ALBUTEROL SULFATE
Strength: EQ 2MG BASE
Dosage Form/Route: TABLET;ORAL
Application: A072619 | Product #001
Applicant: TEVA PHARMACEUTICALS USA INC
Approved: Dec 5, 1989 | RLD: No | RS: No | Type: DISCN